FAERS Safety Report 4950619-4 (Version None)
Quarter: 2006Q1

REPORT INFORMATION
  Report Type: 
  Country: None (occurrence: None)
  Receive Date: 20060322
  Receipt Date: 20051103
  Transmission Date: 20060701
  Serious: Yes (Hospitalization, Disabling)
  Sender: FDA-Public Use
  Company Number: DE-MERCK-0511DEU00025

PATIENT
  Age: 63 Year
  Sex: Male
  Weight: 68 kg

DRUGS (9)
  1. VIOXX [Suspect]
     Route: 048
     Dates: start: 20030224, end: 20030224
  2. ASPIRIN [Concomitant]
     Route: 048
  3. CLOPIDOGREL BISULFATE [Concomitant]
     Route: 048
  4. ISOSORBIDE DINITRATE [Concomitant]
     Route: 048
  5. ATORVASTATIN CALCIUM [Concomitant]
     Route: 048
  6. LISINOPRIL [Concomitant]
     Route: 048
  7. ESOMEPRAZOLE MAGNESIUM [Concomitant]
     Route: 048
  8. METOPROLOL SUCCINATE [Concomitant]
     Route: 048
  9. ENOXAPARIN SODIUM [Concomitant]
     Route: 058

REACTIONS (14)
  - ANGIONEUROTIC OEDEMA [None]
  - ANXIETY [None]
  - CARPAL TUNNEL SYNDROME [None]
  - CERVICOBRACHIAL SYNDROME [None]
  - DUODENAL POLYP [None]
  - HOMOCYSTINAEMIA [None]
  - HYPERTENSION [None]
  - MUSCLE SPASTICITY [None]
  - NIGHTMARE [None]
  - PERIPHERAL ARTERIAL OCCLUSIVE DISEASE [None]
  - SICK SINUS SYNDROME [None]
  - SPONDYLOARTHROPATHY [None]
  - TACHYARRHYTHMIA [None]
  - TRANSIENT ISCHAEMIC ATTACK [None]
